FAERS Safety Report 7580246-4 (Version None)
Quarter: 2011Q2

REPORT INFORMATION
  Report Type: 
  Country: None (occurrence: None)
  Receive Date: 20110629
  Receipt Date: 20110624
  Transmission Date: 20111010
  Serious: No
  Sender: FDA-Public Use
  Company Number: US-TEVA-288018USA

PATIENT
  Sex: Female
  Weight: 66.738 kg

DRUGS (3)
  1. PROZAC [Concomitant]
     Indication: DEPRESSION
  2. ORTHO EVRA [Concomitant]
     Indication: CONTRACEPTION
  3. PLAN B ONE-STEP [Suspect]
     Indication: POST COITAL CONTRACEPTION
     Dosage: 1.5 MILLIGRAM;
     Route: 048
     Dates: start: 20110618, end: 20110618

REACTIONS (1)
  - MENSTRUATION IRREGULAR [None]
